FAERS Safety Report 4505412-3 (Version None)
Quarter: 2004Q4

REPORT INFORMATION
  Report Type: 
  Country: None (occurrence: None)
  Receive Date: 20041116
  Receipt Date: 20041108
  Transmission Date: 20050328
  Serious: Yes (Other)
  Sender: FDA-Public Use
  Company Number: 200413062GDS

PATIENT
  Age: 35 Year
  Sex: Male

DRUGS (2)
  1. NIFEDIPINE [Suspect]
  2. PENICILLAMINE [Suspect]

REACTIONS (13)
  - BLOOD CREATINE PHOSPHOKINASE INCREASED [None]
  - DILATATION VENTRICULAR [None]
  - EJECTION FRACTION DECREASED [None]
  - INTERSTITIAL LUNG DISEASE [None]
  - MYOPATHY [None]
  - MYOSITIS [None]
  - PALPITATIONS [None]
  - PULMONARY FIBROSIS [None]
  - RAYNAUD'S PHENOMENON [None]
  - SCLERODERMA [None]
  - SYSTEMIC SCLEROSIS [None]
  - VENTRICULAR EXTRASYSTOLES [None]
  - VENTRICULAR TACHYCARDIA [None]
